FAERS Safety Report 15028625 (Version 1)
Quarter: 2018Q2

REPORT INFORMATION
  Report Type: Spontaneous
  Country: CA (occurrence: CA)
  Receive Date: 20180619
  Receipt Date: 20180619
  Transmission Date: 20180711
  Serious: Yes (Hospitalization)
  Sender: FDA-Public Use
  Company Number: CA-ROCHE-2141304

PATIENT
  Age: 83 Year
  Sex: Female

DRUGS (29)
  1. CELEBREX [Suspect]
     Active Substance: CELECOXIB
     Indication: ARTHRITIS
     Route: 048
  2. METHOTREXATE SODIUM. [Suspect]
     Active Substance: METHOTREXATE SODIUM
     Indication: RHEUMATOID ARTHRITIS
     Route: 058
  3. NASONEX [Concomitant]
     Active Substance: MOMETASONE FUROATE
     Route: 065
  4. SULFASALAZINE. [Suspect]
     Active Substance: SULFASALAZINE
     Indication: RHEUMATOID ARTHRITIS
     Route: 048
  5. GABAPENTIN. [Suspect]
     Active Substance: GABAPENTIN
     Indication: PRODUCT USED FOR UNKNOWN INDICATION
     Route: 048
  6. MYOCHRYSINE [Suspect]
     Active Substance: GOLD SODIUM THIOMALATE
     Indication: RHEUMATOID ARTHRITIS
     Route: 030
  7. PLAQUENIL [Suspect]
     Active Substance: HYDROXYCHLOROQUINE SULFATE
     Indication: RHEUMATOID ARTHRITIS
     Route: 065
  8. PANTOPRAZOLE MAGNESIUM [Concomitant]
     Active Substance: PANTOPRAZOLE MAGNESIUM
     Route: 065
  9. ACTEMRA [Suspect]
     Active Substance: TOCILIZUMAB
     Indication: RHEUMATOID ARTHRITIS
     Route: 042
  10. ORENCIA [Suspect]
     Active Substance: ABATACEPT
     Indication: RHEUMATOID ARTHRITIS
     Route: 067
  11. ACETAMINOPHEN/OXYCODONE HYDROCHLORIDE [Concomitant]
     Active Substance: ACETAMINOPHEN\OXYCODONE HYDROCHLORIDE
     Indication: PAIN
     Route: 065
  12. PREDNISONE. [Concomitant]
     Active Substance: PREDNISONE
     Route: 065
  13. METHOTREXATE SODIUM. [Suspect]
     Active Substance: METHOTREXATE SODIUM
     Route: 058
  14. ESOMEPRAZOLE MAGNESIUM TRIHYDRATE [Concomitant]
     Active Substance: ESOMEPRAZOLE MAGNESIUM
     Route: 065
  15. LOPERAMIDE HYDROCHLORIDE. [Concomitant]
     Active Substance: LOPERAMIDE HYDROCHLORIDE
     Route: 065
  16. OMEGA-3 FATTY ACIDS [Concomitant]
     Active Substance: OMEGA-3 FATTY ACIDS
     Route: 065
  17. DIPHENOXYLATE HYDROCHLORIDE [Concomitant]
     Active Substance: DIPHENOXYLATE HYDROCHLORIDE
     Route: 065
  18. OXYCODONE TEREPHTHALATE [Concomitant]
     Active Substance: OXYCODONE TEREPHTHALATE
     Indication: PAIN
  19. OXYCONTIN [Suspect]
     Active Substance: OXYCODONE HYDROCHLORIDE
     Indication: PRODUCT USED FOR UNKNOWN INDICATION
     Route: 065
  20. NORTRIPTYLINE HYDROCHLORIDE. [Concomitant]
     Active Substance: NORTRIPTYLINE HYDROCHLORIDE
     Route: 048
  21. PERPHENAZINE. [Concomitant]
     Active Substance: PERPHENAZINE
     Indication: SLEEP DISORDER
     Route: 048
  22. FENTANYL TRANSDERMAL SYSTEM [Suspect]
     Active Substance: FENTANYL
     Indication: PRODUCT USED FOR UNKNOWN INDICATION
     Route: 065
  23. FERROUS GLUCONATE [Concomitant]
     Active Substance: FERROUS GLUCONATE
     Route: 065
  24. TRAZODONE HYDROCHLORIDE. [Concomitant]
     Active Substance: TRAZODONE HYDROCHLORIDE
     Route: 048
  25. ENBREL [Suspect]
     Active Substance: ETANERCEPT
     Indication: RHEUMATOID ARTHRITIS
     Route: 065
  26. ACLASTA [Concomitant]
     Active Substance: ZOLEDRONIC ACID
     Route: 042
  27. ACTONEL [Concomitant]
     Active Substance: RISEDRONATE SODIUM
     Route: 065
  28. ERGOCALCIFEROL. [Concomitant]
     Active Substance: ERGOCALCIFEROL
     Route: 065
  29. TYLENOL [Concomitant]
     Active Substance: ACETAMINOPHEN
     Route: 048

REACTIONS (24)
  - Blood creatinine increased [Unknown]
  - Drug intolerance [Unknown]
  - Epigastric discomfort [Unknown]
  - Gastrointestinal disorder [Unknown]
  - Osteopenia [Unknown]
  - Pleural thickening [Unknown]
  - Skin lesion [Unknown]
  - Diarrhoea [Unknown]
  - Presbyacusis [Unknown]
  - Treatment failure [Unknown]
  - Pleural fibrosis [Unknown]
  - Blood magnesium increased [Unknown]
  - Blood potassium increased [Unknown]
  - Cyst [Unknown]
  - Drug ineffective [Unknown]
  - Infection [Unknown]
  - Osteoarthritis [Unknown]
  - Sleep disorder [Unknown]
  - Fatigue [Unknown]
  - Renal impairment [Unknown]
  - Deafness neurosensory [Unknown]
  - Dry eye [Unknown]
  - Drug hypersensitivity [Unknown]
  - Nausea [Unknown]
